FAERS Safety Report 4620550-2 (Version None)
Quarter: 2005Q1

REPORT INFORMATION
  Report Type: 
  Country: None (occurrence: None)
  Receive Date: 20050328
  Receipt Date: 20050318
  Transmission Date: 20050727
  Serious: Yes (Hospitalization)
  Sender: FDA-Public Use
  Company Number: 2005JP000527

PATIENT
  Age: 52 Year
  Sex: Male

DRUGS (3)
  1. SAWACILLIN [Suspect]
     Indication: PERIODONTITIS
     Dosage: 250MG THREE TIMES PER DAY
     Route: 048
     Dates: start: 20021118, end: 20021120
  2. LYSOZYME HYDROCHLORIDE [Concomitant]
     Route: 065
     Dates: start: 20021118, end: 20021120
  3. MEBRON [Concomitant]
     Route: 065
     Dates: start: 20021118, end: 20021119

REACTIONS (2)
  - ENTEROCOLITIS HAEMORRHAGIC [None]
  - MELAENA [None]
